FAERS Safety Report 17631426 (Version 1)
Quarter: 2020Q2

REPORT INFORMATION
  Report Type: Spontaneous
  Country: CH (occurrence: CH)
  Receive Date: 20200406
  Receipt Date: 20200406
  Transmission Date: 20200713
  Serious: Yes (Other)
  Sender: FDA-Public Use
  Company Number: CH-SA-2020SA081519

PATIENT
  Age: 58 Year
  Sex: Female

DRUGS (7)
  1. NEBILET [Concomitant]
     Active Substance: NEBIVOLOL
     Dosage: START DATE OF TREATMENT UNKNOWN (BETWEEN AUGUST 2017 AND DECEMBER 2018)
     Route: 048
  2. EZETIMIBE. [Concomitant]
     Active Substance: EZETIMIBE
     Dosage: 10 MG, QD (USED PRIOR AT 2018 BUT PROBABLY INCONSISTENTLY)
     Route: 048
     Dates: start: 201812
  3. PRASUGREL. [Concomitant]
     Active Substance: PRASUGREL
     Dosage: UNK
     Dates: start: 201911, end: 201912
  4. BRILIQUE [Suspect]
     Active Substance: TICAGRELOR
     Indication: MYOCARDIAL INFARCTION
     Dosage: 90 MG, BID, HAD ALREADY TAKEN TREATMENT FOR A YEAR BETWEEN 2016 AND 2017 WITH NO SIGNS OF DYSPNOEA
     Route: 048
     Dates: start: 201911, end: 2019
  5. ASPIRIN. [Concomitant]
     Active Substance: ASPIRIN
     Dosage: 100 MG, QD
     Route: 048
     Dates: start: 201611
  6. PRALUENT [Suspect]
     Active Substance: ALIROCUMAB
     Indication: HYPERCHOLESTEROLAEMIA
     Dosage: 150 MG, BIM
     Route: 058
     Dates: start: 201902
  7. LISINOPRIL. [Concomitant]
     Active Substance: LISINOPRIL
     Indication: HYPERTENSION
     Dosage: 5 MG, QD
     Route: 048
     Dates: start: 201812

REACTIONS (2)
  - Dyspnoea [Not Recovered/Not Resolved]
  - Hypersensitivity pneumonitis [Not Recovered/Not Resolved]

NARRATIVE: CASE EVENT DATE: 2019
